FAERS Safety Report 4282493-6 (Version None)
Quarter: 2004Q1

REPORT INFORMATION
  Report Type: 
  Country: None (occurrence: None)
  Receive Date: 20040129
  Receipt Date: 20040122
  Transmission Date: 20041129
  Serious: Yes (Disabling)
  Sender: FDA-Public Use
  Company Number: HQWYE532822JAN04

PATIENT
  Age: 56 Year
  Sex: Male
  Weight: 100 kg

DRUGS (18)
  1. RAPAMUNE [Suspect]
     Indication: PROPHYLAXIS AGAINST TRANSPLANT REJECTION
     Dosage: 1.5 MG 1X PER 1 DAY, ORAL
     Route: 048
     Dates: start: 20030121, end: 20031112
  2. LOPRESSOR [Concomitant]
  3. DILTIAZEM [Concomitant]
  4. CELLCEPT [Concomitant]
  5. ASPIRIN [Concomitant]
  6. BUMEX [Concomitant]
  7. VICODIN (HYDROCODONE BITARTRATE/PARACETMOL) [Concomitant]
  8. ZOCOR [Concomitant]
  9. AMIODARONE HCL [Concomitant]
  10. COUMADIN [Concomitant]
  11. BACTRIM [Concomitant]
  12. NYSTATIN [Concomitant]
  13. ARGININE (ARGININE) [Concomitant]
  14. NEORAL [Concomitant]
  15. PROTONIX [Concomitant]
  16. CIPRO [Concomitant]
  17. K-PHOS NEUTRAL (POTASSIUM PHOSPHATE MONOBASIC/SODIUM PHOSPHATE DIBASIC [Concomitant]
  18. FERROUS SULFATE TAB [Concomitant]

REACTIONS (2)
  - BONE MARROW OEDEMA [None]
  - PAIN IN EXTREMITY [None]
